FAERS Safety Report 9700286 (Version 1)
Quarter: 2013Q4

REPORT INFORMATION
  Report Type: Spontaneous
  Country: US (occurrence: US)
  Receive Date: 20131121
  Receipt Date: 20131121
  Transmission Date: 20140711
  Serious: No
  Sender: FDA-Public Use
  Company Number: US-BAYER-2013-142438

PATIENT
  Sex: 0

DRUGS (1)
  1. GADAVIST [Suspect]
     Dosage: 5.5 ML, UNK
     Dates: start: 20131113, end: 20131113

REACTIONS (1)
  - Vomiting [None]
